FAERS Safety Report 7312903-9 (Version None)
Quarter: 2011Q1

REPORT INFORMATION
  Report Type: 
  Country: None (occurrence: None)
  Receive Date: 20110224
  Receipt Date: 20110214
  Transmission Date: 20110831
  Serious: Yes (Hospitalization)
  Sender: FDA-Public Use
  Company Number: GB-ROCHE-760010

PATIENT
  Sex: Female

DRUGS (11)
  1. CODEINE [Concomitant]
  2. LEVOTHYROXINE SODIUM [Concomitant]
  3. CO-CODAMOL [Concomitant]
  4. METHOTREXATE [Concomitant]
  5. CLOPIDOGREL [Concomitant]
     Dosage: REPORTED AS CLOPIDGREL
  6. TOCILIZUMAB [Suspect]
     Route: 065
     Dates: start: 20110110
  7. RITUXIMAB [Suspect]
     Route: 065
     Dates: start: 20080101
  8. LEFLUNOMIDE [Concomitant]
  9. BISOPROLOL FUMARATE [Concomitant]
     Dosage: REPORTED AS BISOPRLOL
  10. GTN SPRAY [Concomitant]
  11. OMEPRAZOLE [Concomitant]

REACTIONS (4)
  - POSTERIOR REVERSIBLE ENCEPHALOPATHY SYNDROME [None]
  - DRUG RESISTANCE [None]
  - STAPHYLOCOCCAL BACTERAEMIA [None]
  - SEPSIS [None]
